FAERS Safety Report 4979863-7 (Version None)
Quarter: 2006Q2

REPORT INFORMATION
  Report Type: 
  Country: None (occurrence: None)
  Receive Date: 20060421
  Receipt Date: 20051221
  Transmission Date: 20061013
  Serious: Yes (Hospitalization, Disabling)
  Sender: FDA-Public Use
  Company Number: US-MERCK-0512USA03676

PATIENT
  Age: 39 Year
  Sex: Female
  Weight: 64 kg

DRUGS (2)
  1. VIOXX [Suspect]
     Indication: MONARTHRITIS
     Route: 048
     Dates: start: 19990101, end: 20001001
  2. MIRCETTE [Concomitant]
     Indication: CONTRACEPTION
     Route: 065

REACTIONS (12)
  - ANHEDONIA [None]
  - ANKLE FRACTURE [None]
  - DEEP VEIN THROMBOSIS [None]
  - DEPRESSION [None]
  - FEAR [None]
  - HEART RATE IRREGULAR [None]
  - JOINT SPRAIN [None]
  - MUSCULOSKELETAL DISORDER [None]
  - OEDEMA [None]
  - PAIN [None]
  - UTERINE DISORDER [None]
  - WEIGHT INCREASED [None]
